FAERS Safety Report 23056235 (Version 1)
Quarter: 2023Q4

REPORT INFORMATION
  Report Type: Spontaneous
  Country: None (occurrence: FR)
  Receive Date: 20231011
  Receipt Date: 20231011
  Transmission Date: 20240109
  Serious: Yes (Death, Other)
  Sender: FDA-Public Use
  Company Number: FR-B.Braun Medical Inc.-2146920

PATIENT
  Age: 45 Year
  Sex: Female

DRUGS (8)
  1. ACETAMINOPHEN [Suspect]
     Active Substance: ACETAMINOPHEN
  2. CODEINE [Suspect]
     Active Substance: CODEINE
  3. DULOXETINE [Suspect]
     Active Substance: DULOXETINE
  4. ALPRAZOLAM [Suspect]
     Active Substance: ALPRAZOLAM
  5. OXYCODONE. [Suspect]
     Active Substance: OXYCODONE HYDROCHLORIDE
  6. ZOPICLONE [Suspect]
     Active Substance: ZOPICLONE
  7. TRAMADOL [Suspect]
     Active Substance: TRAMADOL\TRAMADOL HYDROCHLORIDE
  8. DRONABINOL [Suspect]
     Active Substance: DRONABINOL

REACTIONS (2)
  - Asphyxia [None]
  - Poisoning [None]
